FAERS Safety Report 16191724 (Version 1)
Quarter: 2019Q2

REPORT INFORMATION
  Report Type: Spontaneous
  Country: NL (occurrence: NL)
  Receive Date: 20190412
  Receipt Date: 20190412
  Transmission Date: 20190711
  Serious: Yes (Other)
  Sender: FDA-Public Use
  Company Number: NL-NAPPMUNDI-GBR-2019-0065788

PATIENT

DRUGS (6)
  1. OXYNORM [Suspect]
     Active Substance: OXYCODONE HYDROCHLORIDE
     Indication: BACK PAIN
     Dosage: 5 MG, DAILY (5MG, 2X/DAY)
     Route: 048
     Dates: start: 20060309
  2. PREGABALIN. [Suspect]
     Active Substance: PREGABALIN
     Indication: BACK PAIN
     Dosage: UNK
     Route: 065
  3. FENTANYL CITRATE. [Suspect]
     Active Substance: FENTANYL CITRATE
     Indication: ARTHRALGIA
     Dosage: UNK
     Route: 065
  4. OXYNORM [Suspect]
     Active Substance: OXYCODONE HYDROCHLORIDE
     Indication: ARTHRALGIA
     Dosage: UNK
     Route: 065
  5. FENTANYL CITRATE. [Suspect]
     Active Substance: FENTANYL CITRATE
     Indication: BACK PAIN
     Dosage: 100 MCG/HOUR
     Route: 061
     Dates: start: 20060309
  6. PREGABALIN. [Suspect]
     Active Substance: PREGABALIN
     Indication: ARTHRALGIA
     Dosage: 300 MG, DAILY (300 MG, 2X/DAY)
     Route: 048
     Dates: start: 20051013

REACTIONS (1)
  - Retinitis [Not Recovered/Not Resolved]

NARRATIVE: CASE EVENT DATE: 2006
